FAERS Safety Report 22393233 (Version 1)
Quarter: 2023Q2

REPORT INFORMATION
  Report Type: Spontaneous
  Country: GB (occurrence: None)
  Receive Date: 20230601
  Receipt Date: 20230601
  Transmission Date: 20230721
  Serious: Yes (Death)
  Sender: FDA-Public Use
  Company Number: GB-MHRA-MED-202305171620248860-RNFKP

PATIENT
  Age: 67 Year
  Sex: Female

DRUGS (3)
  1. METHOTREXATE [Suspect]
     Active Substance: METHOTREXATE
     Indication: Rheumatoid arthritis
     Dates: start: 201912
  2. METHOTREXATE [Suspect]
     Active Substance: METHOTREXATE
     Dates: start: 202207
  3. OLUMIANT [Suspect]
     Active Substance: BARICITINIB
     Indication: Rheumatoid arthritis
     Dates: start: 20190816, end: 202012

REACTIONS (1)
  - Lung adenocarcinoma recurrent [Fatal]

NARRATIVE: CASE EVENT DATE: 20201201
